FAERS Safety Report 8906387 (Version 1)
Quarter: 2012Q4

REPORT INFORMATION
  Report Type: Spontaneous
  Country: US (occurrence: None)
  Receive Date: 20121109
  Receipt Date: 20121109
  Transmission Date: 20130627
  Serious: Yes (Life-Threatening, Hospitalization, Other)
  Sender: FDA-Public Use
  Company Number: None

PATIENT
  Age: 35 Year
  Sex: Female
  Weight: 181.44 kg

DRUGS (1)
  1. ETHINYL ESTRADIOL/NORGESTIMATE [Suspect]
     Indication: BIRTH CONTROL

REACTIONS (5)
  - Pulmonary embolism [None]
  - Cerebrovascular accident [None]
  - Cardiovascular disorder [None]
  - Petit mal epilepsy [None]
  - Blood pressure [None]
